FAERS Safety Report 12507537 (Version 1)
Quarter: 2016Q2

REPORT INFORMATION
  Report Type: Spontaneous
  Country: US (occurrence: None)
  Receive Date: 20160628
  Receipt Date: 20160628
  Transmission Date: 20160815
  Serious: Yes (Hospitalization)
  Sender: FDA-Public Use
  Company Number: None

PATIENT
  Age: 5 Year
  Sex: Male
  Weight: 33.6 kg

DRUGS (1)
  1. DEXAMETHASONE. [Suspect]
     Active Substance: DEXAMETHASONE
     Dosage: TREATING MD STOPPED DEX 2 DAYS EARLY
     Dates: end: 20160614

REACTIONS (7)
  - Gastrointestinal haemorrhage [None]
  - Gastritis [None]
  - Large intestine perforation [None]
  - Septic shock [None]
  - Escherichia bacteraemia [None]
  - Colitis [None]
  - Neutropenia [None]

NARRATIVE: CASE EVENT DATE: 20160615
